FAERS Safety Report 7297391-3 (Version None)
Quarter: 2011Q1

REPORT INFORMATION
  Report Type: 
  Country: None (occurrence: None)
  Receive Date: 20110216
  Receipt Date: 20110210
  Transmission Date: 20110831
  Serious: Yes (Hospitalization, Other)
  Sender: FDA-Public Use
  Company Number: BR-ELI_LILLY_AND_COMPANY-BR201102003077

PATIENT
  Sex: Female

DRUGS (5)
  1. TRAZODONE HYDROCHLORIDE [Concomitant]
     Dosage: 50 MG, UNKNOWN
     Route: 065
  2. PURAN T4 [Concomitant]
     Dosage: UNK, UNKNOWN
     Route: 065
  3. SINVASTATINA [Concomitant]
     Dosage: UNK, UNKNOWN
     Route: 065
  4. CYMBALTA [Suspect]
     Indication: DEPRESSION
     Dosage: 60 MG, DAILY (1/D)
     Route: 048
     Dates: start: 20080101, end: 20100801
  5. CYMBALTA [Suspect]
     Dosage: UNK, UNKNOWN
     Route: 065

REACTIONS (4)
  - DRUG DOSE OMISSION [None]
  - FEELING ABNORMAL [None]
  - SUICIDE ATTEMPT [None]
  - CRYING [None]
